FAERS Safety Report 9123999 (Version 1)
Quarter: 2013Q1

REPORT INFORMATION
  Report Type: Report from Study
  Country: UA (occurrence: UA)
  Receive Date: 20130116
  Receipt Date: 20130116
  Transmission Date: 20140127
  Serious: Yes (Hospitalization)
  Sender: FDA-Public Use
  Company Number: UA-ROCHE-1178866

PATIENT
  Age: 48 Year
  Sex: Male
  Weight: 81.3 kg

DRUGS (4)
  1. BEVACIZUMAB [Suspect]
     Indication: GASTRIC CANCER
     Dosage: LAST DOSE PRIOR TO SAE 612.5 MG
     Route: 042
     Dates: start: 20120522
  2. CAPECITABINE [Suspect]
     Indication: GASTRIC CANCER
     Dosage: LAST DOSE TAKEN WAS 2500 MG
     Route: 048
     Dates: start: 20120522
  3. CISPLATIN [Suspect]
     Indication: GASTRIC CANCER
     Dosage: LAST DOSE TAKEN WAS 118 MG ON 12 JUN 2012
     Route: 042
     Dates: start: 20120522
  4. EPIRUBICIN [Suspect]
     Indication: GASTRIC CANCER
     Dosage: LAST DOSE TAKEN WAS 100 MG ON 12 JUN 2012
     Route: 042
     Dates: start: 20120522

REACTIONS (1)
  - Tendonitis [Recovered/Resolved]
